FAERS Safety Report 5868529-7 (Version None)
Quarter: 2008Q3

REPORT INFORMATION
  Report Type: 
  Country: None (occurrence: None)
  Receive Date: 20080903
  Receipt Date: 20080822
  Transmission Date: 20090109
  Serious: Yes (Hospitalization, Other)
  Sender: FDA-Public Use
  Company Number: PL-ROCHE-583058

PATIENT
  Age: 47 Year
  Sex: Female

DRUGS (6)
  1. MYCOPHENOLATE MOFETIL [Suspect]
     Indication: PROPHYLAXIS
     Route: 065
  2. STEROID NOS [Suspect]
     Indication: PROPHYLAXIS
     Route: 065
  3. PROGRAF [Suspect]
     Indication: PROPHYLAXIS
     Route: 065
  4. CYCLOSPORINE [Suspect]
     Indication: PROPHYLAXIS
     Route: 065
  5. ANTIHYPERTENSIVE NOS [Concomitant]
     Indication: HYPERTENSION
     Dosage: REPORTED AS: ^HYPOTENSIVE DRUGS^
  6. CALCIUM CHANNEL BLOCKER [Concomitant]

REACTIONS (7)
  - HAEMATOMA [None]
  - HERPES ZOSTER [None]
  - HYPERTENSION [None]
  - NEUROTOXICITY [None]
  - RENAL ARTERY STENOSIS [None]
  - URINARY TRACT INFECTION [None]
  - VULVOVAGINAL MYCOTIC INFECTION [None]
